FAERS Safety Report 5270003-6 (Version None)
Quarter: 2007Q1

REPORT INFORMATION
  Report Type: 
  Country: None (occurrence: None)
  Receive Date: 20070320
  Receipt Date: 20070307
  Transmission Date: 20070707
  Serious: Yes (Hospitalization)
  Sender: FDA-Public Use
  Company Number: US-MERCK-0703USA02899

PATIENT
  Age: 59 Year
  Sex: Male

DRUGS (20)
  1. PROSCAR [Suspect]
     Indication: BENIGN PROSTATIC HYPERPLASIA
     Route: 048
     Dates: start: 20050101, end: 20050101
  2. ZOLOFT [Concomitant]
     Indication: DEPRESSION
     Route: 065
  3. NIASPAN [Concomitant]
     Indication: HYPERCHOLESTEROLAEMIA
     Route: 065
  4. ASPIRIN [Concomitant]
     Indication: PROPHYLAXIS
     Route: 065
  5. TYLENOL [Concomitant]
     Route: 065
  6. PLAVIX [Concomitant]
     Indication: PROPHYLAXIS
     Route: 065
  7. LIPITOR [Concomitant]
     Indication: HYPERCHOLESTEROLAEMIA
     Route: 065
  8. AVANDIA [Concomitant]
     Indication: DIABETES MELLITUS
     Route: 065
  9. COREG [Concomitant]
     Indication: HYPERTENSION
     Route: 065
  10. VASOTEC [Concomitant]
     Indication: HYPERTENSION
     Route: 065
     Dates: end: 20051101
  11. VASOTEC [Concomitant]
     Route: 048
  12. ZETIA [Concomitant]
     Route: 048
  13. FLOMAX (MORNIFLUMATE) [Suspect]
     Indication: BENIGN PROSTATIC HYPERPLASIA
     Route: 065
     Dates: start: 20050101, end: 20050101
  14. TRICOR [Concomitant]
     Indication: HYPERCHOLESTEROLAEMIA
     Route: 065
  15. VITAMINS (UNSPECIFIED) [Concomitant]
     Route: 065
  16. VITAMIN B COMPLEX [Concomitant]
     Route: 065
  17. FLAXSEED [Concomitant]
     Route: 065
  18. VITAMIN E [Concomitant]
     Route: 065
  19. ARGININE [Concomitant]
     Route: 065
  20. WELCHOL [Concomitant]
     Route: 065

REACTIONS (5)
  - AORTIC ANEURYSM [None]
  - CHEST PAIN [None]
  - HYPOTENSION [None]
  - PRESYNCOPE [None]
  - SLEEP APNOEA SYNDROME [None]
